FAERS Safety Report 14629819 (Version 1)
Quarter: 2018Q1

REPORT INFORMATION
  Report Type: Spontaneous
  Country: ES (occurrence: ES)
  Receive Date: 20180313
  Receipt Date: 20180313
  Transmission Date: 20180509
  Serious: Yes (Other)
  Sender: FDA-Public Use
  Company Number: ES-ACCORD-064132

PATIENT
  Age: 74 Year
  Sex: Female

DRUGS (1)
  1. MITOMYCIN. [Suspect]
     Active Substance: MITOMYCIN
     Indication: ANTIBIOTIC THERAPY
     Dosage: 40 MG DILUTED IN 40 ML OF WATER AND ADMINISTERED INTO UPPER URINARY TRACT OVER 60 MIN, WEEKLY

REACTIONS (5)
  - Atrial fibrillation [Unknown]
  - Asthenia [Unknown]
  - Bone marrow failure [Not Recovered/Not Resolved]
  - Interstitial lung disease [Not Recovered/Not Resolved]
  - Oedema peripheral [Unknown]
